FAERS Safety Report 4679950-7 (Version None)
Quarter: 2005Q2

REPORT INFORMATION
  Report Type: 
  Country: None (occurrence: None)
  Receive Date: 20050531
  Receipt Date: 20050523
  Transmission Date: 20051028
  Serious: Yes (Life-Threatening)
  Sender: FDA-Public Use
  Company Number: B0382407A

PATIENT
  Age: 3 Month
  Sex: Male
  Weight: 3.9917 kg

DRUGS (1)
  1. ZANTAC [Suspect]
     Indication: GASTROOESOPHAGEAL REFLUX DISEASE
     Dosage: TWICE PER DAY / ORAL
     Route: 048
     Dates: start: 20040810, end: 20041027

REACTIONS (3)
  - APNOEA [None]
  - BRADYCARDIA [None]
  - VOMITING [None]
